FAERS Safety Report 6397170-5 (Version None)
Quarter: 2009Q4

REPORT INFORMATION
  Report Type: 
  Country: None (occurrence: None)
  Receive Date: 20091012
  Receipt Date: 20090930
  Transmission Date: 20100525
  Serious: Yes (Hospitalization)
  Sender: FDA-Public Use
  Company Number: US-PFIZER INC-2009273209

PATIENT
  Age: 34 Year
  Sex: Female

DRUGS (6)
  1. SERTRALINE HCL [Suspect]
     Route: 048
  2. IBUPROFEN [Suspect]
     Route: 048
  3. ATENOLOL [Suspect]
     Route: 048
  4. QUETIAPINE [Suspect]
     Route: 048
  5. VALPROIC ACID [Suspect]
     Route: 048
  6. RABEPRAZOLE [Suspect]
     Route: 048

REACTIONS (2)
  - DEPRESSED LEVEL OF CONSCIOUSNESS [None]
  - MULTIPLE DRUG OVERDOSE INTENTIONAL [None]
